FAERS Safety Report 9013311 (Version 1)
Quarter: 2013Q1

REPORT INFORMATION
  Report Type: Spontaneous
  Country: US (occurrence: None)
  Receive Date: 20130107
  Receipt Date: 20130107
  Transmission Date: 20140127
  Serious: Yes (Other)
  Sender: FDA-Public Use
  Company Number: None

PATIENT
  Age: 41 Year
  Sex: Female
  Weight: 81.65 kg

DRUGS (1)
  1. CLEARLAX [Suspect]
     Indication: CONSTIPATION
     Dosage: 1CAP 1 A DAY
     Dates: start: 20121120, end: 20121226

REACTIONS (12)
  - Product contamination [None]
  - Dizziness [None]
  - Balance disorder [None]
  - Heart rate increased [None]
  - Hyperhidrosis [None]
  - Feeling hot [None]
  - Tremor [None]
  - Insomnia [None]
  - Fatigue [None]
  - Dyspnoea [None]
  - Decreased appetite [None]
  - Arthralgia [None]
